FAERS Safety Report 13934205 (Version 1)
Quarter: 2017Q3

REPORT INFORMATION
  Report Type: Spontaneous
  Country: US (occurrence: US)
  Receive Date: 20170905
  Receipt Date: 20170905
  Transmission Date: 20171127
  Serious: No
  Sender: FDA-Public Use
  Company Number: US-INDOCO-000025

PATIENT
  Age: 71 Year
  Sex: Female
  Weight: 83.91 kg

DRUGS (4)
  1. ZIOPTAN [Concomitant]
     Active Substance: TAFLUPROST
  2. BRIMONIDINE [Suspect]
     Active Substance: BRIMONIDINE TARTRATE
     Indication: GLAUCOMA
     Dosage: STRENGTH: 0.2%, ONE DROP IN EACH EVE TWICE A DAY, 15ML IN 1 BOTTLE
     Dates: start: 201705
  3. VALSARTAN. [Concomitant]
     Active Substance: VALSARTAN
  4. VENTOLIN [Concomitant]
     Active Substance: ALBUTEROL SULFATE

REACTIONS (3)
  - Acne [Recovered/Resolved]
  - Pruritus [Recovered/Resolved]
  - Eye pain [Recovered/Resolved]
